FAERS Safety Report 10207937 (Version 1)
Quarter: 2014Q2

REPORT INFORMATION
  Report Type: Spontaneous
  Country: US (occurrence: US)
  Receive Date: 20140530
  Receipt Date: 20140530
  Transmission Date: 20141212
  Serious: No
  Sender: FDA-Public Use
  Company Number: US-GLAXOSMITHKLINE-A1065605A

PATIENT
  Age: 60 Year
  Sex: Female

DRUGS (3)
  1. VENTOLIN [Suspect]
     Indication: ASTHMA
     Dosage: 2PUFF TWICE PER DAY
     Route: 055
     Dates: start: 200001, end: 201401
  2. SYMBICORT [Concomitant]
  3. PULMICORT [Concomitant]
     Route: 055

REACTIONS (4)
  - Sinus congestion [Unknown]
  - Asthma [Unknown]
  - Productive cough [Unknown]
  - Cough [Unknown]
